FAERS Safety Report 10129441 (Version 1)
Quarter: 2014Q2

REPORT INFORMATION
  Report Type: Spontaneous
  Country: US (occurrence: US)
  Receive Date: 20140428
  Receipt Date: 20140428
  Transmission Date: 20141212
  Serious: Yes (Hospitalization, Other)
  Sender: FDA-Public Use
  Company Number: PHEH2014US007902

PATIENT
  Age: 50 Year
  Sex: Male

DRUGS (1)
  1. SANDOSTATIN LAR DEPOT [Suspect]
     Indication: ACROMEGALY
     Dosage: 20 MG, ONCE A MONTH
     Route: 030
     Dates: start: 20140404, end: 20140413

REACTIONS (1)
  - Diverticulitis [Unknown]
